FAERS Safety Report 8430746-X (Version None)
Quarter: 2012Q2

REPORT INFORMATION
  Report Type: 
  Country: None (occurrence: None)
  Receive Date: 20120612
  Receipt Date: 20120606
  Transmission Date: 20120825
  Serious: Yes (Hospitalization)
  Sender: FDA-Public Use
  Company Number: BE-ROCHE-1071143

PATIENT
  Sex: Male
  Weight: 79 kg

DRUGS (6)
  1. SIMVASTATIN [Concomitant]
     Dates: start: 20120522
  2. AVASTIN [Suspect]
     Indication: COLORECTAL CANCER METASTATIC
     Route: 042
     Dates: start: 20120305, end: 20120521
  3. LEVOLEUCOVORIN CALCIUM [Concomitant]
     Indication: COLORECTAL CANCER METASTATIC
     Route: 042
     Dates: start: 20120305
  4. FLUOROURACIL [Concomitant]
     Indication: COLORECTAL CANCER METASTATIC
     Route: 042
     Dates: start: 20120305
  5. IRINOTECAN HCL [Concomitant]
     Indication: COLORECTAL CANCER METASTATIC
     Route: 042
     Dates: start: 20120305
  6. ASPIRIN [Concomitant]
     Indication: PROPHYLAXIS
     Dates: end: 20120523

REACTIONS (2)
  - TRANSIENT ISCHAEMIC ATTACK [None]
  - DIPLOPIA [None]
